FAERS Safety Report 14700256 (Version 1)
Quarter: 2018Q1

REPORT INFORMATION
  Report Type: Spontaneous
  Country: AT (occurrence: AT)
  Receive Date: 20180330
  Receipt Date: 20180330
  Transmission Date: 20180509
  Serious: Yes (Other)
  Sender: FDA-Public Use
  Company Number: AT-JNJFOC-20180336656

PATIENT
  Sex: Male

DRUGS (4)
  1. CYCLOPHOSPHAMIDE. [Suspect]
     Active Substance: CYCLOPHOSPHAMIDE
     Indication: PERIPHERAL T-CELL LYMPHOMA UNSPECIFIED
     Route: 065
  2. PREDNISOLONE. [Suspect]
     Active Substance: PREDNISOLONE
     Indication: PERIPHERAL T-CELL LYMPHOMA UNSPECIFIED
     Route: 065
  3. DOXORUBICIN HYDROCHLORIDE. [Suspect]
     Active Substance: DOXORUBICIN HYDROCHLORIDE
     Indication: PERIPHERAL T-CELL LYMPHOMA UNSPECIFIED
     Route: 065
  4. VINCRISTIN [Suspect]
     Active Substance: VINCRISTINE
     Indication: PERIPHERAL T-CELL LYMPHOMA UNSPECIFIED
     Route: 065

REACTIONS (3)
  - Peripheral T-cell lymphoma unspecified refractory [Unknown]
  - Product use in unapproved indication [Unknown]
  - Off label use [Unknown]
